FAERS Safety Report 13838137 (Version 4)
Quarter: 2020Q2

REPORT INFORMATION
  Report Type: Report from Study
  Country: CA (occurrence: CA)
  Receive Date: 20170807
  Receipt Date: 20200605
  Transmission Date: 20200713
  Serious: Yes (Other)
  Sender: FDA-Public Use
  Company Number: CA-UCBSA-2017029291

PATIENT
  Age: 50 Year
  Sex: Male

DRUGS (6)
  1. CERTOLIZUMAB PEGOL ASP [Suspect]
     Active Substance: CERTOLIZUMAB PEGOL
     Dosage: 200 MILLIGRAM, EVERY 10 DAYS
     Dates: start: 201707
  2. NEXIUM [Concomitant]
     Active Substance: ESOMEPRAZOLE MAGNESIUM
     Indication: PROPHYLAXIS
     Dosage: 1 DF, ONCE DAILY (QD)
  3. NAPROSYN [Concomitant]
     Active Substance: NAPROXEN
     Indication: PRODUCT USED FOR UNKNOWN INDICATION
     Dosage: 500 MILLIGRAM, AS NEEDED (PRN)
  4. CERTOLIZUMAB PEGOL ASP [Suspect]
     Active Substance: CERTOLIZUMAB PEGOL
     Indication: ANKYLOSING SPONDYLITIS
     Dosage: 400 MG, EV 2 WEEKS(QOW)
     Route: 058
     Dates: start: 20160317, end: 20160414
  5. CERTOLIZUMAB PEGOL ASP [Suspect]
     Active Substance: CERTOLIZUMAB PEGOL
     Dosage: 200 MG, EV 2 WEEKS(QOW)
     Route: 058
     Dates: start: 20160428, end: 20170708
  6. TYLENOL ARTHRITIS PAIN [Concomitant]
     Active Substance: ACETAMINOPHEN
     Indication: PRODUCT USED FOR UNKNOWN INDICATION
     Dosage: 2 PILLS, 2X/DAY (BID)

REACTIONS (3)
  - Off label use [Unknown]
  - Therapeutic product effect incomplete [Unknown]
  - Conjunctivitis viral [Recovered/Resolved]

NARRATIVE: CASE EVENT DATE: 201707
